FAERS Safety Report 7462842-8 (Version None)
Quarter: 2011Q2

REPORT INFORMATION
  Report Type: 
  Country: None (occurrence: None)
  Receive Date: 20110506
  Receipt Date: 20110324
  Transmission Date: 20111010
  Serious: Yes (Hospitalization, Other)
  Sender: FDA-Public Use
  Company Number: US-BAYER-2010-003334

PATIENT
  Age: 28 Year
  Sex: Female
  Weight: 72.562 kg

DRUGS (4)
  1. BACTRIM [Concomitant]
  2. ZOFRAN [Concomitant]
  3. YAZ [Suspect]
     Indication: PREMENSTRUAL SYNDROME
     Dosage: UNK
     Dates: start: 20090101
  4. LORTAB [Concomitant]

REACTIONS (5)
  - SURGERY [None]
  - CHOLECYSTECTOMY [None]
  - PAIN [None]
  - CHOLECYSTITIS [None]
  - BILE DUCT STONE [None]
